FAERS Safety Report 25423054 (Version 1)
Quarter: 2025Q2

REPORT INFORMATION
  Report Type: Spontaneous
  Country: US (occurrence: US)
  Receive Date: 20250611
  Receipt Date: 20250611
  Transmission Date: 20250717
  Serious: No
  Sender: VERTEX
  Company Number: US-VERTEX PHARMACEUTICALS-2025-009339

PATIENT

DRUGS (2)
  1. JOURNAVX [Suspect]
     Active Substance: SUZETRIGINE
     Indication: Pain
     Route: 048
  2. JOURNAVX [Suspect]
     Active Substance: SUZETRIGINE
     Route: 048

REACTIONS (2)
  - Insomnia [Unknown]
  - Intentional product misuse [Unknown]
